FAERS Safety Report 19953754 (Version 1)
Quarter: 2021Q4

REPORT INFORMATION
  Report Type: Spontaneous
  Country: US (occurrence: US)
  Receive Date: 20211014
  Receipt Date: 20211014
  Transmission Date: 20220303
  Serious: No
  Sender: FDA-Public Use
  Company Number: 2021A767075

PATIENT
  Age: 749 Month

DRUGS (1)
  1. QUETIAPINE [Suspect]
     Active Substance: QUETIAPINE
     Indication: Insomnia
     Dosage: HE HAS TRIED TO TAKE 50 MG TWICE BEFORE AND THEN 07-OCT-2021
     Route: 048
     Dates: start: 202109

REACTIONS (4)
  - Insomnia [Unknown]
  - Tachycardia [Unknown]
  - Vertigo [Unknown]
  - Somnolence [Unknown]

NARRATIVE: CASE EVENT DATE: 20210901
